FAERS Safety Report 21330125 (Version 2)
Quarter: 2023Q2

REPORT INFORMATION
  Report Type: Spontaneous
  Country: US (occurrence: US)
  Receive Date: 20220913
  Receipt Date: 20230623
  Transmission Date: 20230721
  Serious: Yes (Death)
  Sender: FDA-Public Use
  Company Number: US-ELI_LILLY_AND_COMPANY-US202209003888

PATIENT
  Sex: Female
  Weight: 56 kg

DRUGS (2)
  1. HUMALOG [Suspect]
     Active Substance: INSULIN LISPRO
     Indication: Diabetes mellitus
     Dosage: 10 U, TID
     Route: 058
     Dates: start: 20220830
  2. BASAGLAR [Suspect]
     Active Substance: INSULIN GLARGINE
     Indication: Diabetes mellitus
     Dosage: 4 U, DAILY
     Route: 065
     Dates: start: 20220713

REACTIONS (2)
  - Cardio-respiratory arrest [Fatal]
  - Sepsis [Fatal]
